FAERS Safety Report 13544554 (Version 1)
Quarter: 2017Q2

REPORT INFORMATION
  Report Type: Spontaneous
  Country: US (occurrence: US)
  Receive Date: 20170512
  Receipt Date: 20170512
  Transmission Date: 20170830
  Serious: Yes (Death, Hospitalization)
  Sender: FDA-Public Use
  Company Number: None

PATIENT
  Age: 70 Year
  Sex: Male

DRUGS (1)
  1. POMALYST [Suspect]
     Active Substance: POMALIDOMIDE
     Indication: PLASMA CELL MYELOMA
     Dosage: 4MG DAILY M-F X21D/28D ORAL ?2 CYCLES
     Route: 048

REACTIONS (3)
  - Acute kidney injury [None]
  - Acute myocardial infarction [None]
  - Plasma cell myeloma [None]

NARRATIVE: CASE EVENT DATE: 20140316
